FAERS Safety Report 4988680-3 (Version None)
Quarter: 2006Q2

REPORT INFORMATION
  Report Type: 
  Country: None (occurrence: None)
  Receive Date: 20060426
  Receipt Date: 20060419
  Transmission Date: 20061013
  Serious: Yes (Disabling)
  Sender: FDA-Public Use
  Company Number: 223099

PATIENT
  Age: 56 Year
  Sex: Female

DRUGS (11)
  1. RITUXAN [Suspect]
     Indication: NON-HODGKIN'S LYMPHOMA
     Dosage: 25 MG/HR, INTRAVENOUS; 100  MG/HR; 25 MG/HR
     Route: 042
     Dates: start: 20060307, end: 20060307
  2. RITUXAN [Suspect]
     Indication: NON-HODGKIN'S LYMPHOMA
     Dosage: 25 MG/HR, INTRAVENOUS; 100  MG/HR; 25 MG/HR
     Route: 042
     Dates: start: 20060307
  3. RITUXAN [Suspect]
     Indication: NON-HODGKIN'S LYMPHOMA
     Dosage: 25 MG/HR, INTRAVENOUS; 100  MG/HR; 25 MG/HR
     Route: 042
     Dates: start: 20060307
  4. IBUPROFEN [Concomitant]
  5. POLARAMINE [Concomitant]
  6. ZOLPIDEM TARTRATE [Concomitant]
  7. SULFAMETHOXAZOLE + TRIMETHOPRIM [Concomitant]
  8. FLUCONAZOLE [Concomitant]
  9. MUCOSTA (REBAMIPIDE) [Concomitant]
  10. FAMOTIDINE [Concomitant]
  11. ALLOPURINOL [Concomitant]

REACTIONS (13)
  - BLOOD PRESSURE DECREASED [None]
  - BRAIN STEM INFARCTION [None]
  - CHILLS [None]
  - DEPRESSED LEVEL OF CONSCIOUSNESS [None]
  - FACIAL PALSY [None]
  - HYPOAESTHESIA ORAL [None]
  - INFARCTION [None]
  - INFUSION RELATED REACTION [None]
  - PALATAL DISORDER [None]
  - PYREXIA [None]
  - SOMNOLENCE [None]
  - VITH NERVE PARALYSIS [None]
  - VOMITING [None]
